FAERS Safety Report 4778032-3 (Version None)
Quarter: 2005Q3

REPORT INFORMATION
  Report Type: 
  Country: None (occurrence: None)
  Receive Date: 20050923
  Receipt Date: 20050923
  Transmission Date: 20060218
  Serious: Yes (Other)
  Sender: FDA-Public Use
  Company Number: None

PATIENT
  Age: 57 Year
  Sex: Male
  Weight: 51.3 kg

DRUGS (15)
  1. DIFLUNISAL [Suspect]
  2. DILTIAZEM HCL [Concomitant]
  3. RAMIPRIL [Concomitant]
  4. THIAMINE HCL [Concomitant]
  5. FLUCONAZOLE [Concomitant]
  6. CITALOPRAM HYDROBROMIDE [Concomitant]
  7. LORAZEPAM [Concomitant]
  8. ZOLPIDEM TARTRATE [Concomitant]
  9. CALCIUM /VITAMIN D [Concomitant]
  10. LANOXIN [Concomitant]
  11. OMEPRAZOLE [Concomitant]
  12. BICALUTAMIDE [Concomitant]
  13. ALBUTEROL/IPRATROP [Concomitant]
  14. GOSERELIN ACETATE [Concomitant]
  15. ALBUTEROL [Concomitant]

REACTIONS (1)
  - URTICARIA [None]
